FAERS Safety Report 4877017-6 (Version None)
Quarter: 2005Q4

REPORT INFORMATION
  Report Type: 
  Country: None (occurrence: None)
  Receive Date: 20051206
  Receipt Date: 20050914
  Transmission Date: 20060501
  Serious: No
  Sender: FDA-Public Use
  Company Number: USA0509108431

PATIENT
  Sex: Female

DRUGS (1)
  1. CYMBALTA [Suspect]
     Dosage: 20 MG
     Dates: start: 20050701, end: 20050801

REACTIONS (1)
  - DRUG INTOLERANCE [None]
